FAERS Safety Report 4336071-0 (Version None)
Quarter: 2004Q2

REPORT INFORMATION
  Report Type: 
  Country: None (occurrence: None)
  Receive Date: 20040406
  Receipt Date: 20040325
  Transmission Date: 20050107
  Serious: Yes (Death)
  Sender: FDA-Public Use
  Company Number: 200409000

PATIENT
  Age: 76 Year
  Sex: Male

DRUGS (6)
  1. STREPTASE [Suspect]
     Indication: MYOCARDIAL INFARCTION
     Dosage: 1.5 MIU DAILY IV
     Route: 042
     Dates: start: 20031212, end: 20031212
  2. CLOPIDOGREL [Suspect]
     Indication: MYOCARDIAL INFARCTION
  3. ENOXAPARIN SODIUM [Suspect]
     Indication: MYOCARDIAL INFARCTION
     Dosage: IV
     Route: 042
     Dates: start: 20031212, end: 20031218
  4. LISINOPRIL [Concomitant]
  5. ALLOPURINOL [Concomitant]
  6. SENOKOT [Concomitant]

REACTIONS (6)
  - CARDIAC ARREST [None]
  - CARDIAC FAILURE CONGESTIVE [None]
  - CARDIOGENIC SHOCK [None]
  - GENERAL PHYSICAL HEALTH DETERIORATION [None]
  - ISCHAEMIA [None]
  - PULMONARY OEDEMA [None]
